FAERS Safety Report 14153537 (Version 1)
Quarter: 2017Q4

REPORT INFORMATION
  Report Type: Spontaneous
  Country: US (occurrence: US)
  Receive Date: 20171102
  Receipt Date: 20171102
  Transmission Date: 20180321
  Serious: No
  Sender: FDA-Public Use
  Company Number: US-SA-2017SA144039

PATIENT
  Age: 62 Year
  Sex: Female

DRUGS (2)
  1. PRALUENT [Suspect]
     Active Substance: ALIROCUMAB
     Route: 058
  2. ALIROCUMAB PREFILLED PEN [Concomitant]
     Active Substance: ALIROCUMAB

REACTIONS (5)
  - Dry skin [Unknown]
  - Mucosal inflammation [Unknown]
  - Dry mouth [Unknown]
  - Condition aggravated [Unknown]
  - Nasal dryness [Unknown]

NARRATIVE: CASE EVENT DATE: 20170708
